FAERS Safety Report 14861743 (Version 1)
Quarter: 2018Q2

REPORT INFORMATION
  Report Type: Spontaneous
  Country: US (occurrence: US)
  Receive Date: 20180423
  Receipt Date: 20180423
  Transmission Date: 20180711
  Serious: Yes (Hospitalization)
  Sender: FDA-Public Use
  Company Number: None

PATIENT
  Age: 71 Year
  Sex: Female

DRUGS (1)
  1. HUMIRA [Suspect]
     Active Substance: ADALIMUMAB
     Indication: RHEUMATOID ARTHRITIS
     Route: 058

REACTIONS (5)
  - Pneumonia bacterial [None]
  - Dehydration [None]
  - Urinary tract infection [None]
  - Atrial fibrillation [None]
  - Musculoskeletal discomfort [None]

NARRATIVE: CASE EVENT DATE: 20180302
